FAERS Safety Report 5316511-0 (Version None)
Quarter: 2007Q2

REPORT INFORMATION
  Report Type: 
  Country: None (occurrence: None)
  Receive Date: 20070504
  Receipt Date: 20070430
  Transmission Date: 20071010
  Serious: Yes (Other)
  Sender: FDA-Public Use
  Company Number: 2007UW01111

PATIENT
  Age: 58 Year
  Sex: Male

DRUGS (1)
  1. ROSUVASTATIN [Suspect]
     Route: 048
     Dates: start: 20050531, end: 20050901

REACTIONS (1)
  - MYASTHENIA GRAVIS [None]
